FAERS Safety Report 6297122-X (Version None)
Quarter: 2009Q3

REPORT INFORMATION
  Report Type: 
  Country: None (occurrence: None)
  Receive Date: 20090724
  Receipt Date: 20090521
  Transmission Date: 20100115
  Serious: Yes (Hospitalization)
  Sender: FDA-Public Use
  Company Number: 2008BI014404

PATIENT
  Age: 62 Year
  Sex: Female
  Weight: 63.5036 kg

DRUGS (2)
  1. TYSABRI [Suspect]
     Indication: MULTIPLE SCLEROSIS
     Dosage: 300 MG;QM;IV
     Route: 042
     Dates: start: 20070530
  2. AVONEX [Concomitant]

REACTIONS (9)
  - BACK PAIN [None]
  - CARTILAGE INJURY [None]
  - COORDINATION ABNORMAL [None]
  - HYPOAESTHESIA [None]
  - INTERVERTEBRAL DISC DEGENERATION [None]
  - INTERVERTEBRAL DISC PROTRUSION [None]
  - MENTAL IMPAIRMENT [None]
  - MUSCULOSKELETAL DISORDER [None]
  - PERONEAL NERVE PALSY [None]
